FAERS Safety Report 23802692 (Version 1)
Quarter: 2024Q2

REPORT INFORMATION
  Report Type: Spontaneous
  Country: PL (occurrence: PL)
  Receive Date: 20240501
  Receipt Date: 20240501
  Transmission Date: 20240716
  Serious: Yes (Hospitalization, Other)
  Sender: FDA-Public Use
  Company Number: PL-EMA-DD-20190205-agrahari_p-184223

PATIENT
  Age: 47 Year
  Sex: Male

DRUGS (33)
  1. MYCOPHENOLATE MOFETIL [Suspect]
     Active Substance: MYCOPHENOLATE MOFETIL
     Indication: Pulmonary alveolar haemorrhage
     Dosage: 1 G, QD
     Dates: start: 201408, end: 201502
  2. METHYLPREDNISOLONE [Suspect]
     Active Substance: METHYLPREDNISOLONE
     Indication: Pulmonary alveolar haemorrhage
     Dosage: THREE PULSES (750-1000-1000 MG)
     Dates: start: 201312
  3. CYCLOPHOSPHAMIDE [Suspect]
     Active Substance: CYCLOPHOSPHAMIDE
     Indication: Pulmonary alveolar haemorrhage
     Dosage: 6 PULSES 1.5 G EACH EVERY 4 WEEKS
     Dates: start: 201401, end: 201407
  4. PREDNISONE [Suspect]
     Active Substance: PREDNISONE
     Indication: Pulmonary alveolar haemorrhage
     Dosage: 100 MG
     Dates: start: 201502
  5. AMOXICILLIN\CLAVULANIC ACID [Concomitant]
     Active Substance: AMOXICILLIN\CLAVULANIC ACID
     Indication: Pulmonary alveolar haemorrhage
     Dosage: UNK
  6. FLUCONAZOLE [Concomitant]
     Active Substance: FLUCONAZOLE
     Indication: Pulmonary alveolar haemorrhage
     Dosage: UNK
  7. WARFARIN [Concomitant]
     Active Substance: WARFARIN
     Indication: Deep vein thrombosis
     Dosage: UNK
  8. CLARITHROMYCIN [Concomitant]
     Active Substance: CLARITHROMYCIN
     Indication: Pulmonary alveolar haemorrhage
     Dosage: UNK
  9. HUMAN IMMUNOGLOBULIN G [Concomitant]
     Active Substance: HUMAN IMMUNOGLOBULIN G
     Indication: Pulmonary alveolar haemorrhage
     Dosage: 50 G, DAILY FOR 5 DAYS
     Dates: start: 201408
  10. PREDNISONE [Suspect]
     Active Substance: PREDNISONE
     Indication: Pulmonary alveolar haemorrhage
     Dosage: 60 MG
     Dates: start: 201408
  11. PREDNISONE [Suspect]
     Active Substance: PREDNISONE
     Indication: Pulmonary alveolar haemorrhage
     Dosage: 20 MG
     Dates: start: 201401, end: 201407
  12. PREDNISONE [Suspect]
     Active Substance: PREDNISONE
     Indication: Pulmonary alveolar haemorrhage
     Dosage: 25 MG; PREDNISONE IN A TAPERING DOSAGE (30?25 MG)
     Dates: start: 201608, end: 201610
  13. PREDNISONE [Suspect]
     Active Substance: PREDNISONE
     Indication: Pulmonary alveolar haemorrhage
     Dosage: 25 MG; PREDNISONE IN A TAPERING DOSAGE (55?25 MG)
     Dates: start: 201408, end: 201502
  14. PREDNISONE [Suspect]
     Active Substance: PREDNISONE
     Indication: Pulmonary alveolar haemorrhage
     Dosage: 20 MG; PREDNISONE IN A TAPERING DOSAGE (50?20 MG)
     Dates: start: 201701, end: 201801
  15. PREDNISONE [Suspect]
     Active Substance: PREDNISONE
     Indication: Pulmonary alveolar haemorrhage
     Dosage: 80 MG
     Dates: start: 201312
  16. PREDNISONE [Suspect]
     Active Substance: PREDNISONE
     Indication: Pulmonary alveolar haemorrhage
     Dosage: 20 MG; PREDNISONE IN A TAPERING DOSAGE (40?20 MG)
     Dates: start: 201605, end: 201608
  17. PREDNISONE [Suspect]
     Active Substance: PREDNISONE
     Indication: Pulmonary alveolar haemorrhage
     Dosage: 40 MG
     Dates: start: 201605
  18. PREDNISONE [Suspect]
     Active Substance: PREDNISONE
     Indication: Pulmonary alveolar haemorrhage
     Dosage: 20 MG; PREDNISONE IN A TAPERING DOSAGE (25?20 MG)
     Dates: start: 201610, end: 201701
  19. PREDNISONE [Suspect]
     Active Substance: PREDNISONE
     Indication: Pulmonary alveolar haemorrhage
     Dosage: 30 MG
     Dates: start: 201608
  20. PREDNISONE [Suspect]
     Active Substance: PREDNISONE
     Indication: Pulmonary alveolar haemorrhage
     Dosage: 15 MG; PREDNISONE IN A TAPERING DOSAGE (65?15 MG)
     Dates: start: 201504, end: 201605
  21. PREDNISONE [Suspect]
     Active Substance: PREDNISONE
     Indication: Pulmonary alveolar haemorrhage
     Dosage: 75 MG; PREDNISONE IN A TAPERING DOSAGE (90?75 MG)
     Dates: start: 201502, end: 201504
  22. PREDNISONE [Suspect]
     Active Substance: PREDNISONE
     Indication: Pulmonary alveolar haemorrhage
     Dosage: 75 MG
     Dates: start: 201504
  23. PREDNISONE [Suspect]
     Active Substance: PREDNISONE
     Indication: Pulmonary alveolar haemorrhage
     Dosage: 20 MG
     Dates: start: 201802, end: 201804
  24. PREDNISONE [Suspect]
     Active Substance: PREDNISONE
     Indication: Pulmonary alveolar haemorrhage
     Dosage: 80 MG
     Dates: start: 201701
  25. MYCOPHENOLATE MOFETIL [Suspect]
     Active Substance: MYCOPHENOLATE MOFETIL
     Indication: Pulmonary alveolar haemorrhage
     Dosage: 2 G, QD
     Dates: start: 201504, end: 201605
  26. MYCOPHENOLATE MOFETIL [Suspect]
     Active Substance: MYCOPHENOLATE MOFETIL
     Indication: Pulmonary alveolar haemorrhage
     Dosage: 2 G, QD
     Dates: start: 201502
  27. MYCOPHENOLATE MOFETIL [Suspect]
     Active Substance: MYCOPHENOLATE MOFETIL
     Indication: Pulmonary alveolar haemorrhage
     Dosage: 2 G, QD
     Dates: start: 201605, end: 201608
  28. MYCOPHENOLATE MOFETIL [Suspect]
     Active Substance: MYCOPHENOLATE MOFETIL
     Indication: Pulmonary alveolar haemorrhage
     Dosage: 2 G, QD
     Dates: start: 201608, end: 201610
  29. MYCOPHENOLATE MOFETIL [Suspect]
     Active Substance: MYCOPHENOLATE MOFETIL
     Indication: Pulmonary alveolar haemorrhage
     Dosage: 3 G, QD
     Dates: start: 201610, end: 201701
  30. MYCOPHENOLATE MOFETIL [Suspect]
     Active Substance: MYCOPHENOLATE MOFETIL
     Indication: Pulmonary alveolar haemorrhage
     Dosage: 3 G, QD
     Dates: start: 201701, end: 201801
  31. METHYLPREDNISOLONE [Suspect]
     Active Substance: METHYLPREDNISOLONE
     Indication: Pulmonary alveolar haemorrhage
     Dosage: 3 PULSES 500 MG EACH DAILY FOR 3 DAYS
     Dates: start: 201408
  32. METHYLPREDNISOLONE [Suspect]
     Active Substance: METHYLPREDNISOLONE
     Indication: Pulmonary alveolar haemorrhage
     Dosage: 500 MG
     Dates: start: 201701
  33. METHYLPREDNISOLONE [Suspect]
     Active Substance: METHYLPREDNISOLONE
     Indication: Pulmonary alveolar haemorrhage
     Dosage: 1000 MG
     Dates: start: 201701

REACTIONS (6)
  - Pneumonia [Unknown]
  - Haemoptysis [Unknown]
  - Respiratory failure [Unknown]
  - Pulmonary alveolar haemorrhage [Recovering/Resolving]
  - Disease recurrence [Recovering/Resolving]
  - Pathological fracture [Unknown]
